FAERS Safety Report 19948358 (Version 2)
Quarter: 2021Q4

REPORT INFORMATION
  Report Type: Spontaneous
  Country: US (occurrence: US)
  Receive Date: 20211012
  Receipt Date: 20211026
  Transmission Date: 20220303
  Serious: No
  Sender: FDA-Public Use
  Company Number: US-BAUSCH-BL-2021-033582

PATIENT
  Age: 64 Year
  Sex: Female
  Weight: 69.46 kg

DRUGS (3)
  1. LATANOPROST [Suspect]
     Active Substance: LATANOPROST
     Indication: Glaucoma
     Dosage: AT BED TIME
     Route: 047
  2. LATANOPROST [Suspect]
     Active Substance: LATANOPROST
     Dosage: AT BED TIME
     Route: 047
  3. SYNTHROID [Concomitant]
     Active Substance: LEVOTHYROXINE SODIUM
     Indication: Product used for unknown indication
     Route: 048

REACTIONS (7)
  - Vision blurred [Not Recovered/Not Resolved]
  - Headache [Unknown]
  - Product quality issue [Unknown]
  - Poor quality product administered [Unknown]
  - Product storage error [Unknown]
  - Product delivery mechanism issue [Unknown]
  - Incorrect dose administered [Unknown]

NARRATIVE: CASE EVENT DATE: 20210901
